FAERS Safety Report 6534738-7 (Version None)
Quarter: 2010Q1

REPORT INFORMATION
  Report Type: 
  Country: None (occurrence: None)
  Receive Date: 20100112
  Receipt Date: 20091231
  Transmission Date: 20100710
  Serious: Yes (Death, Hospitalization)
  Sender: FDA-Public Use
  Company Number: IT-PFIZER INC-2009305490

PATIENT
  Age: 69 Year
  Sex: Male
  Weight: 77 kg

DRUGS (4)
  1. BLINDED *NO SUBJECT DRUG [Suspect]
     Indication: PROSTATE CANCER
     Dosage: 37.5 MG, X DAY
     Route: 048
     Dates: start: 20091118, end: 20091201
  2. BLINDED *PLACEBO [Suspect]
     Indication: PROSTATE CANCER
     Dosage: 37.5 MG, X DAY
     Route: 048
     Dates: start: 20091118, end: 20091201
  3. BLINDED SUNITINIB MALATE [Suspect]
     Indication: PROSTATE CANCER
     Dosage: 37.5 MG, X DAY
     Route: 048
     Dates: start: 20091118, end: 20091201
  4. PREDNISONE [Suspect]
     Indication: PROSTATE CANCER
     Dosage: 10 MG, TABLETS TWICE DAILY
     Route: 048
     Dates: start: 20091118, end: 20091201

REACTIONS (2)
  - DISEASE PROGRESSION [None]
  - PROSTATE CANCER [None]
